FAERS Safety Report 13054217 (Version 1)
Quarter: 2016Q4

REPORT INFORMATION
  Report Type: Spontaneous
  Country: US (occurrence: US)
  Receive Date: 20161222
  Receipt Date: 20161222
  Transmission Date: 20170207
  Serious: No
  Sender: FDA-Public Use
  Company Number: None

PATIENT
  Sex: Female

DRUGS (2)
  1. LAMICTAL [Suspect]
     Active Substance: LAMOTRIGINE
  2. LEVOTHYROXINE SODIUM. [Suspect]
     Active Substance: LEVOTHYROXINE SODIUM

REACTIONS (8)
  - Seizure [None]
  - Hormone level abnormal [None]
  - Malaise [None]
  - Drug dispensing error [None]
  - Transcription medication error [None]
  - Aura [None]
  - Wrong drug administered [None]
  - Drug prescribing error [None]

NARRATIVE: CASE EVENT DATE: 2016
